FAERS Safety Report 9840143 (Version 1)
Quarter: 2013Q4

REPORT INFORMATION
  Report Type: Spontaneous
  Country: US (occurrence: None)
  Receive Date: 20131209
  Receipt Date: 20131209
  Transmission Date: 20140711
  Serious: Yes (Other)
  Sender: FDA-Public Use
  Company Number: ALL1-2013-00741

PATIENT
  Age: 12 Year
  Sex: Male
  Weight: 46.4 kg

DRUGS (1)
  1. MAS [Suspect]
     Indication: PRODUCT USED FOR UNKNOWN INDICATION
     Dosage: 20 MG, UNKNOWN, ORAL
     Route: 048

REACTIONS (1)
  - Abnormal loss of weight [None]
